FAERS Safety Report 17238120 (Version 1)
Quarter: 2020Q1

REPORT INFORMATION
  Report Type: Spontaneous
  Country: US (occurrence: US)
  Receive Date: 20200106
  Receipt Date: 20200106
  Transmission Date: 20200409
  Serious: Yes (Other)
  Sender: FDA-Public Use
  Company Number: US-PACIRA-201900292

PATIENT
  Age: 46 Year
  Sex: Female
  Weight: 64 kg

DRUGS (19)
  1. BUPIVACAINE. [Suspect]
     Active Substance: BUPIVACAINE
     Indication: POSTOPERATIVE ANALGESIA
     Dosage: 20 CC (266 MG OF EXPAREL), 20 CC OF 0.25% PLAIN BUPIVACAINE, 1 40CC OF INJECTABLE SALINE
     Route: 065
     Dates: start: 20190910, end: 20190910
  2. LIDOCAINE. [Suspect]
     Active Substance: LIDOCAINE
     Indication: ANALGESIC INTERVENTION SUPPORTIVE THERAPY
     Dosage: 60 MG IN OR
     Route: 065
     Dates: start: 20190910, end: 20190910
  3. TRAZODONE [Concomitant]
     Active Substance: TRAZODONE HYDROCHLORIDE
     Indication: PRODUCT USED FOR UNKNOWN INDICATION
     Dosage: UNKNOWN
     Route: 065
  4. NEURONTIN [Concomitant]
     Active Substance: GABAPENTIN
     Indication: PRODUCT USED FOR UNKNOWN INDICATION
     Dosage: UNKNOWN
     Route: 065
  5. ROCURONIUM [Suspect]
     Active Substance: ROCURONIUM BROMIDE
     Indication: ANALGESIC INTERVENTION SUPPORTIVE THERAPY
     Dosage: 40 MG
     Route: 065
     Dates: start: 20190910, end: 20190910
  6. DEXAMETHASONE. [Suspect]
     Active Substance: DEXAMETHASONE
     Indication: ANALGESIC INTERVENTION SUPPORTIVE THERAPY
     Dosage: 10 MG
     Route: 065
     Dates: start: 20190910, end: 20190910
  7. SEVO [Suspect]
     Active Substance: SEVOFLURANE
     Indication: ANALGESIC INTERVENTION SUPPORTIVE THERAPY
     Dosage: UNKNOWN
     Route: 065
     Dates: start: 20190910, end: 20190910
  8. FENTANYL. [Suspect]
     Active Substance: FENTANYL
     Indication: PAIN MANAGEMENT
     Dosage: 75 MCG
     Route: 065
  9. HYDROCODONE [Suspect]
     Active Substance: HYDROCODONE
     Indication: PAIN MANAGEMENT
     Dosage: 1 TAB
     Route: 065
  10. SALINE [Suspect]
     Active Substance: SODIUM CHLORIDE
     Indication: PAIN MANAGEMENT
     Dosage: 20 CC (266 MG OF EXPAREL), 20 CC OF 0.25% PLAIN BUPIVACAINE, 1 40CC OF INJECTABLE SALINE
     Route: 065
     Dates: start: 20190910, end: 20190910
  11. FENTANYL. [Suspect]
     Active Substance: FENTANYL
     Indication: ANALGESIC INTERVENTION SUPPORTIVE THERAPY
     Dosage: 150 MCG IN OR
     Route: 065
     Dates: start: 20190910, end: 20190910
  12. GLYCO (GLYCOPYRRONIUM) [Suspect]
     Active Substance: GLYCOPYRRONIUM
     Indication: ANALGESIC INTERVENTION SUPPORTIVE THERAPY
     Dosage: .2
     Route: 065
     Dates: start: 20190910, end: 20190910
  13. AMBIEN [Concomitant]
     Active Substance: ZOLPIDEM TARTRATE
     Indication: PRODUCT USED FOR UNKNOWN INDICATION
     Dosage: UNKNOWN
     Route: 065
  14. TORADOL [Suspect]
     Active Substance: KETOROLAC TROMETHAMINE
     Indication: ANALGESIC INTERVENTION SUPPORTIVE THERAPY
     Dosage: 15 MG IN OR
     Route: 065
     Dates: start: 20190910, end: 20190910
  15. ZOFRAN [Suspect]
     Active Substance: ONDANSETRON HYDROCHLORIDE
     Indication: ANALGESIC INTERVENTION SUPPORTIVE THERAPY
     Dosage: 4 MG
     Route: 065
     Dates: start: 20190910, end: 20190910
  16. EXPAREL [Suspect]
     Active Substance: BUPIVACAINE
     Indication: POSTOPERATIVE ANALGESIA
     Dosage: 20 CC (266 MG OF EXPAREL), 20 CC OF 0.25% PLAIN BUPIVACAINE, 1 40CC OF INJECTABLE SALINE
     Route: 065
     Dates: start: 20190910, end: 20190910
  17. PROPOFOL. [Suspect]
     Active Substance: PROPOFOL
     Indication: ANALGESIC INTERVENTION SUPPORTIVE THERAPY
     Dosage: 150 MG IN OR
     Route: 065
     Dates: start: 20190910, end: 20190910
  18. ANCEF [Suspect]
     Active Substance: CEFAZOLIN SODIUM
     Indication: ANALGESIC INTERVENTION SUPPORTIVE THERAPY
     Dosage: 2 GM
     Route: 065
     Dates: start: 20190910, end: 20190910
  19. DIAZEPAM. [Suspect]
     Active Substance: DIAZEPAM
     Indication: PAIN MANAGEMENT
     Dosage: 1 TAB
     Route: 065

REACTIONS (1)
  - Hypersensitivity [Recovered/Resolved]

NARRATIVE: CASE EVENT DATE: 20190910
